FAERS Safety Report 5494147-9 (Version None)
Quarter: 2007Q4

REPORT INFORMATION
  Report Type: 
  Country: None (occurrence: None)
  Receive Date: 20071022
  Receipt Date: 20071009
  Transmission Date: 20080405
  Serious: Yes (Hospitalization)
  Sender: FDA-Public Use
  Company Number: FABR-12207

PATIENT
  Age: 81 Year
  Sex: Male

DRUGS (4)
  1. FABRAZYME [Suspect]
     Indication: FABRY'S DISEASE
     Dosage: 85 MG Q2WKS IV
     Route: 042
     Dates: start: 20061215
  2. FABRAZYME [Suspect]
  3. LISINOPRIL [Suspect]
     Dates: end: 20070901
  4. LISINOPRIL [Concomitant]

REACTIONS (3)
  - HERNIA [None]
  - HYPOTENSION [None]
  - PNEUMONIA [None]
